FAERS Safety Report 5266617-X (Version None)
Quarter: 2007Q1

REPORT INFORMATION
  Report Type: 
  Country: None (occurrence: None)
  Receive Date: 20070315
  Receipt Date: 20070305
  Transmission Date: 20070707
  Serious: Yes (Other)
  Sender: FDA-Public Use
  Company Number: US-PFIZER INC-2007018349

PATIENT
  Sex: Female

DRUGS (1)
  1. LYRICA [Suspect]
     Indication: PROCEDURAL PAIN
     Dates: start: 20070301, end: 20070301

REACTIONS (4)
  - DYSSTASIA [None]
  - MUSCLE TWITCHING [None]
  - PAIN [None]
  - SOMNOLENCE [None]
